FAERS Safety Report 13737755 (Version 1)
Quarter: 2017Q3

REPORT INFORMATION
  Report Type: Report from Study
  Country: US (occurrence: US)
  Receive Date: 20170710
  Receipt Date: 20170710
  Transmission Date: 20171127
  Serious: No
  Sender: FDA-Public Use
  Company Number: US-SAOL THERAPEUTICS-2016SAO00709

PATIENT
  Age: 50 Year
  Sex: Female

DRUGS (8)
  1. COMPOUNDED BACLOFEN [Suspect]
     Active Substance: BACLOFEN
     Dosage: 105.33 ?G, \DAY
     Route: 037
     Dates: start: 20160126, end: 20160128
  2. CLONIDINE. [Suspect]
     Active Substance: CLONIDINE
     Dosage: 251.07 ?G, \DAY
     Route: 037
     Dates: start: 20160126, end: 20160128
  3. CLONIDINE. [Suspect]
     Active Substance: CLONIDINE
     Dosage: 200.99 ?G, \DAY
     Route: 037
     Dates: start: 20160126
  4. BUPIVACAINE. [Suspect]
     Active Substance: BUPIVACAINE
     Dosage: 8.039 MG, \DAY
     Route: 037
     Dates: start: 20160126
  5. SUFENTANIL [Suspect]
     Active Substance: SUFENTANIL
     Dosage: 189.83 ?G, \DAY
     Route: 037
     Dates: start: 20160126, end: 20160128
  6. SUFENTANIL [Suspect]
     Active Substance: SUFENTANIL
     Dosage: 151.97 ?G, \DAY
     Route: 037
     Dates: start: 20160128
  7. COMPOUNDED BACLOFEN [Suspect]
     Active Substance: BACLOFEN
     Dosage: 84.32 ?G, \DAY
     Route: 037
     Dates: start: 20160126
  8. BUPIVACAINE. [Suspect]
     Active Substance: BUPIVACAINE
     Dosage: 10.043 MG, \DAY
     Route: 037
     Dates: start: 20160126, end: 20160128

REACTIONS (1)
  - Hypoaesthesia [Recovered/Resolved]

NARRATIVE: CASE EVENT DATE: 20160126
